FAERS Safety Report 16984961 (Version 2)
Quarter: 2019Q4

REPORT INFORMATION
  Report Type: Spontaneous
  Country: US (occurrence: US)
  Receive Date: 20191101
  Receipt Date: 20191118
  Transmission Date: 20200122
  Serious: Yes (Hospitalization)
  Sender: FDA-Public Use
  Company Number: US-JNJFOC-20191040460

PATIENT
  Age: 83 Year
  Sex: Male

DRUGS (8)
  1. NAPROXEN. [Concomitant]
     Active Substance: NAPROXEN
  2. VITAMIN D                          /07503901/ [Concomitant]
     Active Substance: VITAMIN D NOS
  3. MULTIVITAMINS                      /00116001/ [Concomitant]
     Active Substance: VITAMINS
  4. IMBRUVICA [Suspect]
     Active Substance: IBRUTINIB
     Indication: CHRONIC LYMPHOCYTIC LEUKAEMIA
     Dosage: 420 MG, QD
     Route: 048
     Dates: start: 20190914, end: 20191026
  5. TYLENOL [Concomitant]
     Active Substance: ACETAMINOPHEN
  6. ATORVASTATIN [Concomitant]
     Active Substance: ATORVASTATIN
     Dosage: 40 MG
  7. CALCIUM [Concomitant]
     Active Substance: CALCIUM
  8. GABAPENTIN. [Concomitant]
     Active Substance: GABAPENTIN

REACTIONS (5)
  - Cough [Recovered/Resolved]
  - Chills [Recovered/Resolved]
  - Viral infection [Recovered/Resolved]
  - Body temperature increased [Recovered/Resolved]
  - Malaise [Recovered/Resolved]

NARRATIVE: CASE EVENT DATE: 20191016
